FAERS Safety Report 23919390 (Version 1)
Quarter: 2024Q2

REPORT INFORMATION
  Report Type: Spontaneous
  Country: FR (occurrence: FR)
  Receive Date: 20240530
  Receipt Date: 20240530
  Transmission Date: 20240716
  Serious: Yes (Other)
  Sender: FDA-Public Use
  Company Number: FR-002147023-NVSC2024FR070671

PATIENT
  Age: 63 Year
  Sex: Female
  Weight: 61.8 kg

DRUGS (11)
  1. ALDACTONE [Suspect]
     Active Substance: SPIRONOLACTONE
     Indication: Cardiac failure
     Dosage: 25 MG, 1X/DAY IN THE MORNING
     Route: 065
     Dates: start: 20240308, end: 20240314
  2. ENTRESTO [Suspect]
     Active Substance: SACUBITRIL\VALSARTAN
     Indication: Myocardial infarction
     Dosage: 1 DF, 2X/DAY
     Route: 048
     Dates: start: 20240307, end: 20240314
  3. ENTRESTO [Suspect]
     Active Substance: SACUBITRIL\VALSARTAN
     Indication: Cardiac failure
  4. FUROSEMIDE [Concomitant]
     Active Substance: FUROSEMIDE
     Indication: Cardiac failure
     Dosage: 40 MG, 2X/DAY IN THE MORNING AND AT NOON
     Route: 048
     Dates: start: 20240303
  5. PANTOPRAZOLE [Concomitant]
     Active Substance: PANTOPRAZOLE
     Dosage: 20 MG, 1X/DAY IN THE EVENING
     Route: 065
  6. LIPTRUZET [Concomitant]
     Active Substance: ATORVASTATIN CALCIUM\EZETIMIBE
     Indication: Coronary artery insufficiency
     Dosage: 1 DF, 1X/DAY N THE EVENING
     Route: 048
     Dates: start: 20240304
  7. ASPIRIN\CLOPIDOGREL [Concomitant]
     Active Substance: ASPIRIN\CLOPIDOGREL
     Indication: Coronary artery insufficiency
     Dosage: 1 DF, 1X/DAY IN THE MORNING
     Route: 048
     Dates: start: 20240304
  8. ELIQUIS [Concomitant]
     Active Substance: APIXABAN
     Indication: Thrombosis
     Dosage: 5 MG, 2X/DAY IN THE MORNING AND IN THE EVENING
     Route: 048
     Dates: start: 20240304
  9. DAPAGLIFLOZIN [Concomitant]
     Active Substance: DAPAGLIFLOZIN
     Indication: Cardiac failure
     Dosage: 10 MG, 1X/DAY IN THE MORNING
     Route: 048
     Dates: start: 20240304
  10. BISOPROLOL [Concomitant]
     Active Substance: BISOPROLOL\BISOPROLOL FUMARATE
     Indication: Coronary artery insufficiency
     Dosage: 1.25 MG, 2X/DAY IN THE MORNING AND IN THE EVENING
     Route: 048
  11. BISOPROLOL [Concomitant]
     Active Substance: BISOPROLOL\BISOPROLOL FUMARATE
     Indication: Cardiac failure

REACTIONS (5)
  - Rash [Unknown]
  - Pruritus [Unknown]
  - Toxic skin eruption [Recovered/Resolved]
  - Rash maculo-papular [Recovered/Resolved]
  - Acute kidney injury [Recovered/Resolved]

NARRATIVE: CASE EVENT DATE: 20240311
